FAERS Safety Report 4344828-5 (Version None)
Quarter: 2004Q2

REPORT INFORMATION
  Report Type: 
  Country: None (occurrence: None)
  Receive Date: 20040420
  Receipt Date: 20040408
  Transmission Date: 20050107
  Serious: Yes (Other)
  Sender: FDA-Public Use
  Company Number: 2004024088

PATIENT
  Age: 22 Year
  Sex: Male

DRUGS (3)
  1. ATARAX [Suspect]
     Indication: PREMEDICATION
     Dosage: 100 MG (ONE DOSE), ORAL
     Route: 048
     Dates: start: 20040206, end: 20040206
  2. XYLOCAINE W/ EPINEPHRENE [Concomitant]
  3. ROPIVACAINE HYDROCHLORIDE (ROPIVACAINE HYDROCHLORIDE) [Concomitant]

REACTIONS (3)
  - BRADYCARDIA [None]
  - MALAISE [None]
  - NAUSEA [None]
